FAERS Safety Report 15178729 (Version 1)
Quarter: 2018Q3

REPORT INFORMATION
  Report Type: Spontaneous
  Country: GB (occurrence: GB)
  Receive Date: 20180722
  Receipt Date: 20180722
  Transmission Date: 20181010
  Serious: Yes (Hospitalization)
  Sender: FDA-Public Use
  Company Number: PHHY2015GB178050

PATIENT
  Age: 43 Year
  Sex: Female

DRUGS (22)
  1. TRASTUZUMAB. [Suspect]
     Active Substance: TRASTUZUMAB
     Dosage: 420 MG, Q3W
     Route: 042
     Dates: start: 20150709
  2. PERTUZUMAB. [Suspect]
     Active Substance: PERTUZUMAB
     Dosage: 420 MG, Q3W
     Route: 042
     Dates: start: 20150709
  3. TRAMADOL. [Concomitant]
     Active Substance: TRAMADOL
     Indication: PAIN
     Dosage: 100 MG, QD
     Route: 048
  4. METFORMIN [Concomitant]
     Active Substance: METFORMIN HYDROCHLORIDE
     Dosage: 1 UNK, UNK
  5. CHLORPHENAMINE [Concomitant]
     Active Substance: CHLORPHENIRAMINE MALEATE
     Indication: PRODUCT USED FOR UNKNOWN INDICATION
     Dosage: 10 MG, UNK
     Route: 042
     Dates: start: 20150709, end: 20150709
  6. DOMPERIDONE [Concomitant]
     Active Substance: DOMPERIDONE
     Indication: PRODUCT USED FOR UNKNOWN INDICATION
     Dosage: 30 MG, QD
     Route: 048
     Dates: start: 20150709
  7. DOCETAXEL. [Suspect]
     Active Substance: DOCETAXEL
     Indication: BREAST CANCER METASTATIC
     Dosage: 130 MG, Q3W
     Route: 042
     Dates: start: 20150616, end: 20150709
  8. PACLITAXEL ALBUMIN [Suspect]
     Active Substance: PACLITAXEL
     Dosage: 340 MG, QW3
     Route: 042
     Dates: start: 20150910
  9. TRASTUZUMAB. [Suspect]
     Active Substance: TRASTUZUMAB
     Dosage: 567 UNK, UNK
     Route: 042
     Dates: start: 20150616
  10. METFORMIN [Concomitant]
     Active Substance: METFORMIN HYDROCHLORIDE
     Indication: DIABETES MELLITUS
     Dosage: 2 G, QD
     Route: 048
  11. HYDROCORTISONE. [Concomitant]
     Active Substance: HYDROCORTISONE
     Indication: PRODUCT USED FOR UNKNOWN INDICATION
     Dosage: 100 MG, UNK
     Route: 042
     Dates: start: 20150709, end: 20150709
  12. COCODAMOL [Concomitant]
     Active Substance: ACETAMINOPHEN\CODEINE PHOSPHATE
     Indication: PRODUCT USED FOR UNKNOWN INDICATION
     Dosage: 2000 MG, QD
     Route: 048
  13. PACLITAXEL ALBUMIN [Suspect]
     Active Substance: PACLITAXEL
     Indication: BREAST CANCER METASTATIC
     Dosage: 450 MG, QW3
     Route: 042
     Dates: start: 20150730
  14. PACLITAXEL ALBUMIN [Suspect]
     Active Substance: PACLITAXEL
     Dosage: 340 MG, UNK
     Route: 042
     Dates: start: 20151022
  15. TRASTUZUMAB. [Suspect]
     Active Substance: TRASTUZUMAB
     Indication: BREAST CANCER METASTATIC
     Dosage: 567 MG, UNK
     Route: 042
     Dates: start: 20150616
  16. HERCEPTIN [Suspect]
     Active Substance: TRASTUZUMAB
     Indication: BREAST CANCER METASTATIC
     Dosage: 567 MG, UNK(1 TOTAL)
     Route: 042
     Dates: start: 20150616, end: 20150616
  17. TRAMADOL. [Concomitant]
     Active Substance: TRAMADOL
     Dosage: 50 MG, QD
     Route: 048
  18. DOMPERIDONE [Concomitant]
     Active Substance: DOMPERIDONE
     Dosage: 10 MG, QD
     Route: 048
     Dates: start: 20150709
  19. PACLITAXEL ALBUMIN [Suspect]
     Active Substance: PACLITAXEL
     Dosage: 450 MG, Q3W
     Route: 042
     Dates: start: 20150820
  20. PERTUZUMAB. [Suspect]
     Active Substance: PERTUZUMAB
     Indication: BREAST CANCER METASTATIC
     Dosage: 840 MG, UNK
     Route: 042
     Dates: start: 20150615, end: 20150615
  21. COCODAMOL [Concomitant]
     Active Substance: ACETAMINOPHEN\CODEINE PHOSPHATE
     Dosage: 500 MG, QD
     Route: 048
  22. HERCEPTIN [Suspect]
     Active Substance: TRASTUZUMAB
     Dosage: 420 MG, Q3W
     Route: 042
     Dates: start: 20150709

REACTIONS (8)
  - Fatigue [Recovered/Resolved]
  - Neuropathy peripheral [Recovered/Resolved]
  - Mucosal inflammation [Recovered/Resolved]
  - Chest pain [Recovered/Resolved]
  - Febrile neutropenia [Recovered/Resolved]
  - Chest pain [Not Recovered/Not Resolved]
  - Diarrhoea [Recovered/Resolved]
  - Swelling [Not Recovered/Not Resolved]

NARRATIVE: CASE EVENT DATE: 20150908
